FAERS Safety Report 9912402 (Version 6)
Quarter: 2014Q2

REPORT INFORMATION
  Report Type: Spontaneous
  Country: US (occurrence: US)
  Receive Date: 20140220
  Receipt Date: 20140624
  Transmission Date: 20141212
  Serious: Yes (Hospitalization, Other)
  Sender: FDA-Public Use
  Company Number: US-BEH-2014040601

PATIENT
  Age: 58 Year
  Sex: Female
  Weight: 81 kg

DRUGS (11)
  1. BERINERT [Suspect]
     Indication: PROPHYLAXIS
     Dosage: 4 ML PER MINUTE
     Route: 042
     Dates: start: 20131205
  2. BERINERT [Suspect]
     Indication: HEREDITARY ANGIOEDEMA
     Dosage: 500 UNIT VIAL
     Route: 042
  3. BERINERT [Suspect]
     Indication: HEREDITARY ANGIOEDEMA
     Dosage: 4 ML /MIN
     Route: 042
  4. RENOVA [Concomitant]
     Dosage: 0.02%
  5. TIZANIDINE HCL [Concomitant]
  6. FIRAZYR [Concomitant]
  7. SIMVASTATIN [Concomitant]
  8. PROMETHAZINE [Concomitant]
  9. TRAZODONE [Concomitant]
  10. PERCOCET [Concomitant]
     Dosage: 5-325 MG
  11. PLAVIX [Concomitant]

REACTIONS (4)
  - Hereditary angioedema [Unknown]
  - Renal disorder [Unknown]
  - Nephrectomy [Recovered/Resolved]
  - Renal cancer [Recovered/Resolved]
